FAERS Safety Report 7381451-2 (Version None)
Quarter: 2011Q1

REPORT INFORMATION
  Report Type: 
  Country: None (occurrence: None)
  Receive Date: 20110329
  Receipt Date: 20110325
  Transmission Date: 20110831
  Serious: Yes (Other)
  Sender: FDA-Public Use
  Company Number: VE-PFIZER INC-2011066911

PATIENT
  Age: 79 Year
  Sex: Female

DRUGS (4)
  1. PLENDIL [Concomitant]
     Dosage: UNK
     Route: 048
  2. ELANTAN ^KNOLL^ [Concomitant]
     Dosage: UNK
     Route: 048
  3. LIPITOR [Suspect]
     Indication: MYOCARDIAL INFARCTION
     Dosage: UNK
     Route: 048
     Dates: start: 20080201
  4. VASTAREL [Concomitant]
     Dosage: 30 MG, UNK
     Route: 048

REACTIONS (1)
  - CEREBROVASCULAR ACCIDENT [None]
